FAERS Safety Report 7389233-2 (Version None)
Quarter: 2011Q2

REPORT INFORMATION
  Report Type: 
  Country: None (occurrence: None)
  Receive Date: 20110401
  Receipt Date: 20101221
  Transmission Date: 20111010
  Serious: No
  Sender: FDA-Public Use
  Company Number: US-BAYER-2011-011853

PATIENT
  Sex: Female
  Weight: 62 kg

DRUGS (7)
  1. ALEVE (CAPLET) [Suspect]
     Indication: ANALGESIC THERAPY
     Dosage: 2 DF, BID
  2. LYRICA [Concomitant]
  3. LEVOTHYROXINE SODIUM [Concomitant]
  4. FERROUS SULFATE TAB [Concomitant]
  5. NEXIUM [Concomitant]
  6. PRAVASTATIN [Concomitant]
  7. LEXAPRO [Concomitant]

REACTIONS (1)
  - NO ADVERSE EVENT [None]
